FAERS Safety Report 6166969-2 (Version None)
Quarter: 2009Q2

REPORT INFORMATION
  Report Type: 
  Country: None (occurrence: None)
  Receive Date: 20090422
  Receipt Date: 20090408
  Transmission Date: 20091009
  Serious: Yes (Hospitalization, Other)
  Sender: FDA-Public Use
  Company Number: 1000000746

PATIENT
  Age: 3 Year
  Sex: Male

DRUGS (1)
  1. MEMANTINE HCL [Suspect]
     Dosage: (ONCE), ORAL
     Route: 048
     Dates: start: 20080826, end: 20080826

REACTIONS (4)
  - ACCIDENTAL DRUG INTAKE BY CHILD [None]
  - DIZZINESS [None]
  - GAIT DISTURBANCE [None]
  - HEADACHE [None]
